FAERS Safety Report 8977987 (Version 3)
Quarter: 2013Q2

REPORT INFORMATION
  Report Type: Spontaneous
  Country: CA (occurrence: CA)
  Receive Date: 20121220
  Receipt Date: 20130618
  Transmission Date: 20140414
  Serious: Yes (Hospitalization)
  Sender: FDA-Public Use
  Company Number: CA-ROCHE-1170156

PATIENT
  Age: 55 Year
  Sex: Male

DRUGS (3)
  1. XOLAIR [Suspect]
     Indication: ASTHMA
     Route: 058
     Dates: start: 20071017
  2. XOLAIR [Suspect]
     Route: 058
     Dates: start: 20120322
  3. XOLAIR [Suspect]
     Route: 065
     Dates: start: 20120926

REACTIONS (4)
  - Myocardial infarction [Unknown]
  - Blood pressure decreased [Unknown]
  - Heart rate decreased [Unknown]
  - Drug effect decreased [Unknown]
